FAERS Safety Report 7006653-6 (Version None)
Quarter: 2010Q3

REPORT INFORMATION
  Report Type: 
  Country: None (occurrence: None)
  Receive Date: 20100910
  Receipt Date: 20100903
  Transmission Date: 20110219
  Serious: Yes (Other)
  Sender: FDA-Public Use
  Company Number: 2009SP038965

PATIENT
  Age: 20 Year
  Sex: Female
  Weight: 43.0917 kg

DRUGS (6)
  1. NUVARING [Suspect]
     Indication: CONTRACEPTION
  2. NUVARING [Suspect]
     Indication: MENSTRUAL CYCLE MANAGEMENT
  3. LORTAB [Suspect]
     Indication: HEADACHE
  4. IBUPROFEN [Concomitant]
  5. EXCEDRIN (MIGRAINE) [Concomitant]
  6. ALBUTEROL [Concomitant]

REACTIONS (29)
  - ABDOMINAL PAIN LOWER [None]
  - ABDOMINAL PAIN UPPER [None]
  - ANXIETY [None]
  - ASTHENIA [None]
  - CHEST PAIN [None]
  - CONSTIPATION [None]
  - COUGH [None]
  - CYSTITIS [None]
  - DECREASED INTEREST [None]
  - DEPRESSION [None]
  - DRUG EXPOSURE BEFORE PREGNANCY [None]
  - GASTROINTESTINAL INFECTION [None]
  - HEADACHE [None]
  - HYPOCOAGULABLE STATE [None]
  - HYPOPHAGIA [None]
  - IRRITABILITY [None]
  - LOWER RESPIRATORY TRACT INFECTION [None]
  - MIGRAINE [None]
  - MUSCLE STRAIN [None]
  - OVARIAN CYST RUPTURED [None]
  - PANIC ATTACK [None]
  - PULMONARY EMBOLISM [None]
  - RECTAL HAEMORRHAGE [None]
  - RHINITIS ALLERGIC [None]
  - ROAD TRAFFIC ACCIDENT [None]
  - SUICIDAL IDEATION [None]
  - THIRST [None]
  - URINARY TRACT INFECTION BACTERIAL [None]
  - VULVOVAGINAL CANDIDIASIS [None]
